FAERS Safety Report 7178247-3 (Version None)
Quarter: 2010Q4

REPORT INFORMATION
  Report Type: 
  Country: None (occurrence: None)
  Receive Date: 20101220
  Receipt Date: 20101215
  Transmission Date: 20110411
  Serious: Yes (Hospitalization)
  Sender: FDA-Public Use
  Company Number: CO-ROCHE-723931

PATIENT
  Sex: Female

DRUGS (5)
  1. ACTEMRA [Suspect]
     Indication: RHEUMATOID ARTHRITIS
     Dosage: LAST INFUSION: 29 JULY 2010
     Route: 042
     Dates: start: 20090803
  2. ENALAPRIL [Concomitant]
     Dosage: FREQUENCY: EVERYDAY
     Route: 048
  3. LOSARTAN [Concomitant]
     Dosage: FREQUENCY: EVERYDAY
     Route: 048
  4. METHOTREXATE [Concomitant]
     Indication: RHEUMATOID ARTHRITIS
     Route: 048
  5. FOLIC ACID [Concomitant]
     Dosage: FREQUENCY: EVERYDAY
     Route: 048

REACTIONS (5)
  - ACUTE MYOCARDIAL INFARCTION [None]
  - ARTHRALGIA [None]
  - CHEST PAIN [None]
  - ONYCHOMADESIS [None]
  - ORAL MUCOSAL ERUPTION [None]
